FAERS Safety Report 4264568-0 (Version None)
Quarter: 2004Q1

REPORT INFORMATION
  Report Type: 
  Country: None (occurrence: None)
  Receive Date: 20040106
  Receipt Date: 20031225
  Transmission Date: 20041129
  Serious: Yes (Hospitalization)
  Sender: FDA-Public Use
  Company Number: WAES 0401USA00066

PATIENT
  Age: 70 Year
  Sex: Female

DRUGS (8)
  1. [THERAPY UNSPECIFIED] [Suspect]
     Indication: PERITONITIS
  2. AMLODIN [Concomitant]
     Route: 048
     Dates: end: 20031201
  3. STRONGER NEO-MINOPHAGEN C [Concomitant]
     Route: 042
     Dates: end: 20031201
  4. PEPCID RPD [Suspect]
     Route: 048
     Dates: end: 20031201
  5. DAIKENCHUTO [Concomitant]
     Route: 048
     Dates: end: 20031201
  6. NUTRITIONAL SUPPLEMENTS [Concomitant]
     Route: 048
     Dates: end: 20031201
  7. ALDACTONE [Concomitant]
     Route: 048
     Dates: end: 20031201
  8. URSO [Concomitant]
     Route: 048
     Dates: end: 20031201

REACTIONS (3)
  - FLUID RETENTION [None]
  - PANCYTOPENIA [None]
  - PERITONITIS [None]
